FAERS Safety Report 7343235-0 (Version None)
Quarter: 2011Q1

REPORT INFORMATION
  Report Type: 
  Country: None (occurrence: None)
  Receive Date: 20110310
  Receipt Date: 20110302
  Transmission Date: 20110831
  Serious: Yes (Hospitalization)
  Sender: FDA-Public Use
  Company Number: US-JNJFOC-20110303265

PATIENT
  Sex: Female
  Weight: 29.5 kg

DRUGS (4)
  1. REMICADE [Suspect]
     Indication: INFLAMMATORY BOWEL DISEASE
     Dosage: STARTED
     Route: 042
  2. MESALAMINE [Concomitant]
     Indication: INFLAMMATORY BOWEL DISEASE
  3. REMICADE [Suspect]
     Dosage: DISCONTINUED, UNSPECIFIED REASON
     Route: 042
  4. ANTIBIOTICS [Concomitant]
     Indication: INFLAMMATORY BOWEL DISEASE

REACTIONS (1)
  - CROHN'S DISEASE [None]
